FAERS Safety Report 9302762 (Version 1)
Quarter: 2013Q2

REPORT INFORMATION
  Report Type: Spontaneous
  Country: US (occurrence: US)
  Receive Date: 20130522
  Receipt Date: 20130522
  Transmission Date: 20140414
  Serious: Yes (Death)
  Sender: FDA-Public Use
  Company Number: US-VERTEX PHARMACEUTICALS INC-2013-006255

PATIENT
  Age: 54 Year
  Sex: Male

DRUGS (2)
  1. INCIVEK [Suspect]
     Indication: HEPATITIS C
  2. NEUPOGEN [Concomitant]

REACTIONS (1)
  - Leukaemia [Fatal]
